FAERS Safety Report 15276788 (Version 3)
Quarter: 2018Q4

REPORT INFORMATION
  Report Type: Spontaneous
  Country: TR (occurrence: TR)
  Receive Date: 20180814
  Receipt Date: 20181218
  Transmission Date: 20190204
  Serious: Yes (Other)
  Sender: FDA-Public Use
  Company Number: TR-PFIZER INC-2018326037

PATIENT
  Sex: Male

DRUGS (1)
  1. AMIODARONE HCL [Suspect]
     Active Substance: AMIODARONE HYDROCHLORIDE
     Dosage: UNK (CHRONIC LOW-DOSE)
     Route: 065

REACTIONS (3)
  - International normalised ratio increased [Unknown]
  - Tongue haematoma [Unknown]
  - Pulmonary alveolar haemorrhage [Unknown]
